FAERS Safety Report 11270717 (Version 3)
Quarter: 2016Q1

REPORT INFORMATION
  Report Type: Report from Study
  Country: US (occurrence: US)
  Receive Date: 20150714
  Receipt Date: 20160106
  Transmission Date: 20160525
  Serious: Yes (Other)
  Sender: FDA-Public Use
  Company Number: US-BAYER-2015-250358

PATIENT
  Age: 70 Year
  Sex: Male

DRUGS (4)
  1. NEXAVAR [Suspect]
     Active Substance: SORAFENIB
     Indication: PANCYTOPENIA
     Dosage: 400 MG, BID
     Route: 048
     Dates: start: 20150703
  2. NEXAVAR [Suspect]
     Active Substance: SORAFENIB
     Indication: HEPATIC CANCER
     Dosage: 400 MG, BID
     Route: 048
     Dates: start: 20150505
  3. NEXAVAR [Suspect]
     Active Substance: SORAFENIB
     Indication: COLON CANCER
     Dosage: 400 MG, QD
     Route: 048
  4. INSULIN [INSULIN] [Concomitant]
     Active Substance: INSULIN NOS
     Indication: BLOOD GLUCOSE NORMAL

REACTIONS (19)
  - Aortic valve replacement [None]
  - Vena cava filter insertion [None]
  - Haemoglobin decreased [None]
  - Platelet count decreased [None]
  - Deep vein thrombosis [None]
  - Gastric ulcer [None]
  - Dyspnoea [Recovering/Resolving]
  - Cellulitis [None]
  - Deep vein thrombosis [Recovering/Resolving]
  - Vertigo [Not Recovered/Not Resolved]
  - Diarrhoea [Not Recovered/Not Resolved]
  - Frequent bowel movements [None]
  - Haemoglobin decreased [Recovering/Resolving]
  - Fatigue [Not Recovered/Not Resolved]
  - Fatigue [Recovering/Resolving]
  - Weight decreased [None]
  - Hypertension [None]
  - Haematochezia [None]
  - Blood pressure measurement [None]

NARRATIVE: CASE EVENT DATE: 201505
